FAERS Safety Report 7997494-1 (Version None)
Quarter: 2011Q4

REPORT INFORMATION
  Report Type: 
  Country: None (occurrence: None)
  Receive Date: 20111221
  Receipt Date: 20111221
  Transmission Date: 20120403
  Serious: Yes (Hospitalization)
  Sender: FDA-Public Use
  Company Number: None

PATIENT
  Age: 57 Year
  Sex: Male

DRUGS (1)
  1. MIDAZOLAM [Suspect]
     Indication: SEDATION

REACTIONS (2)
  - INCORRECT DOSE ADMINISTERED [None]
  - IATROGENIC INJURY [None]
